FAERS Safety Report 6271332-X (Version None)
Quarter: 2009Q3

REPORT INFORMATION
  Report Type: 
  Country: None (occurrence: None)
  Receive Date: 20090717
  Receipt Date: 20090715
  Transmission Date: 20100115
  Serious: Yes (Life-Threatening, Hospitalization)
  Sender: FDA-Public Use
  Company Number: FR-WYE-G03948509

PATIENT
  Sex: Female
  Weight: 87.2 kg

DRUGS (10)
  1. GEMTUZUMAB OZOGAMICIN [Suspect]
     Indication: ACUTE MYELOID LEUKAEMIA
     Dosage: 5 MG TOTAL DAILY
     Route: 042
     Dates: start: 20090518, end: 20090518
  2. DAUNORUBICIN HCL [Suspect]
     Indication: ACUTE MYELOID LEUKAEMIA
     Dosage: 110 MG TOTAL DAILY
     Route: 042
     Dates: start: 20090518, end: 20090518
  3. ZELITREX [Concomitant]
     Dosage: 1000 MG TOTAL DAILY
     Route: 048
     Dates: start: 20090430
  4. TRIATEC [Concomitant]
     Dosage: 3.75 MG TOTAL DAILY
     Route: 048
     Dates: start: 20090403, end: 20090525
  5. TRIATEC [Concomitant]
     Dosage: 5 MG TOTAL DAILY
     Route: 048
     Dates: start: 20090526, end: 20090603
  6. TRIATEC [Concomitant]
     Dosage: 7.5 MG TOTAL DAILY
     Route: 048
     Dates: start: 20090604
  7. CARDENSIEL [Concomitant]
     Dosage: 1.25 MG TOTAL DAILY
     Route: 048
     Dates: start: 20090423
  8. INEGY [Concomitant]
     Route: 048
     Dates: start: 20090513
  9. CYTARABINE [Suspect]
     Indication: ACUTE MYELOID LEUKAEMIA
     Dosage: 3600 MG TOTAL DAILY
     Route: 042
     Dates: start: 20090518, end: 20090521
  10. EFFEXOR [Concomitant]
     Route: 048
     Dates: start: 20090402

REACTIONS (1)
  - VENOOCCLUSIVE LIVER DISEASE [None]
